FAERS Safety Report 14678044 (Version 2)
Quarter: 2018Q2

REPORT INFORMATION
  Report Type: Report from Study
  Country: US (occurrence: US)
  Receive Date: 20180326
  Receipt Date: 20180420
  Transmission Date: 20180711
  Serious: Yes (Hospitalization)
  Sender: FDA-Public Use
  Company Number: US-ALEXION PHARMACEUTICALS INC.-A201803043

PATIENT
  Age: 2 Year
  Sex: Female
  Weight: 9.5 kg

DRUGS (4)
  1. STRENSIQ [Suspect]
     Active Substance: ASFOTASE ALFA
     Indication: HYPOPHOSPHATASIA
     Dosage: 9 MG, UNK
     Route: 065
     Dates: start: 20151125
  2. ANCEF [Concomitant]
     Active Substance: CEFAZOLIN SODIUM
     Indication: PRODUCT USED FOR UNKNOWN INDICATION
     Dosage: UNK
     Route: 065
     Dates: end: 20180115
  3. BACITRACIN. [Concomitant]
     Active Substance: BACITRACIN
     Indication: SWELLING
     Dosage: UNK, BID
     Route: 065
  4. STRENSIQ [Suspect]
     Active Substance: ASFOTASE ALFA
     Dosage: 27 MG, TIW
     Route: 065
     Dates: start: 20180110

REACTIONS (1)
  - Cranial operation [Recovered/Resolved]

NARRATIVE: CASE EVENT DATE: 20180112
